FAERS Safety Report 7005330-5 (Version None)
Quarter: 2010Q3

REPORT INFORMATION
  Report Type: 
  Country: None (occurrence: None)
  Receive Date: 20100921
  Receipt Date: 20100803
  Transmission Date: 20110219
  Serious: Yes (Hospitalization)
  Sender: FDA-Public Use
  Company Number: US-BAYER-200939442NA

PATIENT
  Age: 17 Year
  Sex: Female
  Weight: 104 kg

DRUGS (3)
  1. YASMIN [Suspect]
     Indication: MENORRHAGIA
     Route: 048
     Dates: start: 20070401, end: 20070501
  2. BENADRYL [Concomitant]
  3. CONTRACEPTIVES NOS [Concomitant]

REACTIONS (3)
  - ABDOMINAL PAIN [None]
  - PAIN [None]
  - THROMBOPHLEBITIS SUPERFICIAL [None]
